FAERS Safety Report 7842794-9 (Version None)
Quarter: 2011Q4

REPORT INFORMATION
  Report Type: 
  Country: None (occurrence: None)
  Receive Date: 20111025
  Receipt Date: 20111012
  Transmission Date: 20120403
  Serious: Yes (Hospitalization)
  Sender: FDA-Public Use
  Company Number: US-BAYER-2011-032892

PATIENT
  Sex: Female

DRUGS (7)
  1. STROVITE [Concomitant]
     Dosage: UNK UNK, QD
  2. VICKS DAYQUIL [PARACETAMOL,PSEUDOEPHEDRINE HYDROCHLORIDE] [Concomitant]
     Indication: SINUS HEADACHE
  3. YAZ [Suspect]
     Indication: PREMENSTRUAL SYNDROME
     Dosage: UNK
     Dates: start: 20080101, end: 20090101
  4. EXCEDRIN (MIGRAINE) [Concomitant]
     Indication: DYSMENORRHOEA
  5. ALESSE [Concomitant]
     Dosage: UNK
     Dates: start: 20070518, end: 20090407
  6. IBUPROFEN (ADVIL) [Concomitant]
     Indication: DYSMENORRHOEA
     Dosage: UNK UNK, QID
  7. SARAFEM [Concomitant]
     Indication: PREMENSTRUAL SYNDROME
     Dosage: 20 MG, QD

REACTIONS (4)
  - NEPHROLITHIASIS [None]
  - INJURY [None]
  - PAIN [None]
  - CALCULUS URETERIC [None]
